FAERS Safety Report 23481296 (Version 1)
Quarter: 2024Q1

REPORT INFORMATION
  Report Type: Spontaneous
  Country: DE (occurrence: DE)
  Receive Date: 20240205
  Receipt Date: 20240205
  Transmission Date: 20240410
  Serious: No
  Sender: FDA-Public Use
  Company Number: DE-JNJFOC-20240157946

PATIENT
  Age: 62 Year
  Sex: Male
  Weight: 78.5 kg

DRUGS (1)
  1. TALVEY [Suspect]
     Active Substance: TALQUETAMAB-TGVS
     Indication: Product used for unknown indication
     Route: 042
     Dates: start: 20240119

REACTIONS (1)
  - Incorrect route of product administration [Unknown]
